FAERS Safety Report 10018924 (Version 3)
Quarter: 2014Q2

REPORT INFORMATION
  Report Type: Spontaneous
  Country: CA (occurrence: CA)
  Receive Date: 20140318
  Receipt Date: 20140620
  Transmission Date: 20141212
  Serious: Yes (Death, Hospitalization)
  Sender: FDA-Public Use
  Company Number: CA-GLAXOSMITHKLINE-A1061086A

PATIENT
  Age: 65 Year
  Sex: Male

DRUGS (5)
  1. TAFINLAR [Suspect]
     Indication: METASTATIC MALIGNANT MELANOMA
     Dosage: 300MG PER DAY
     Route: 048
     Dates: start: 20140213
  2. DEXAMETHASONE [Concomitant]
     Indication: METASTASES TO CENTRAL NERVOUS SYSTEM
  3. RAMIPRIL [Concomitant]
     Indication: HYPERTENSION
  4. CRESTOR [Concomitant]
     Indication: DYSLIPIDAEMIA
  5. SENOKOT [Concomitant]
     Indication: CONSTIPATION

REACTIONS (6)
  - Eye pruritus [Unknown]
  - Skin odour abnormal [Not Recovered/Not Resolved]
  - Contusion [Unknown]
  - Metastases to lung [Unknown]
  - Chest pain [Recovered/Resolved]
  - Death [Fatal]
